FAERS Safety Report 9570088 (Version 1)
Quarter: 2013Q3

REPORT INFORMATION
  Report Type: Spontaneous
  Country: US (occurrence: None)
  Receive Date: 20130926
  Receipt Date: 20130926
  Transmission Date: 20140515
  Serious: Yes (Life-Threatening, Hospitalization, Disabling)
  Sender: FDA-Public Use
  Company Number: None

PATIENT
  Age: 39 Year
  Sex: Female
  Weight: 70.31 kg

DRUGS (4)
  1. DEPO PROVERA [Suspect]
     Indication: OVARIAN CYST
     Dosage: INTO THE MUSCLE
     Dates: end: 20110415
  2. DEPO PROVERA [Suspect]
     Indication: ABNORMAL WITHDRAWAL BLEEDING
     Dosage: INTO THE MUSCLE
     Dates: end: 20110415
  3. DEPO PROVERA [Suspect]
     Indication: CONTRACEPTION
     Dosage: INTO THE MUSCLE
     Dates: end: 20110415
  4. DEPO PROVERA [Suspect]
     Indication: PROPHYLAXIS
     Dosage: INTO THE MUSCLE
     Dates: end: 20110415

REACTIONS (4)
  - Deep vein thrombosis [None]
  - Pulmonary embolism [None]
  - Thrombosis [None]
  - Unevaluable event [None]
